FAERS Safety Report 7371522-9 (Version None)
Quarter: 2011Q1

REPORT INFORMATION
  Report Type: 
  Country: None (occurrence: None)
  Receive Date: 20110324
  Receipt Date: 20110318
  Transmission Date: 20110831
  Serious: Yes (Hospitalization)
  Sender: FDA-Public Use
  Company Number: US-ASTRAZENECA-2011SE15753

PATIENT
  Age: 58 Year
  Sex: Female
  Weight: 56.7 kg

DRUGS (5)
  1. PROZAC [Concomitant]
  2. NITROGLYCERIN [Concomitant]
  3. CYMBALTA [Suspect]
     Dates: start: 20110201
  4. INHARELS [Concomitant]
  5. SEROQUEL [Suspect]
     Indication: BIPOLAR DISORDER
     Route: 048
     Dates: start: 20090101

REACTIONS (7)
  - GASTRIC ULCER HAEMORRHAGE [None]
  - STENT PLACEMENT [None]
  - CHRONIC OBSTRUCTIVE PULMONARY DISEASE [None]
  - HEADACHE [None]
  - VOMITING [None]
  - FALL [None]
  - FEELING ABNORMAL [None]
